FAERS Safety Report 16239363 (Version 1)
Quarter: 2019Q2

REPORT INFORMATION
  Report Type: Spontaneous
  Country: CA (occurrence: CA)
  Receive Date: 20190425
  Receipt Date: 20190425
  Transmission Date: 20190711
  Serious: Yes (Other)
  Sender: FDA-Public Use
  Company Number: CA-PFIZER INC-2019166729

PATIENT
  Age: 71 Year
  Sex: Female

DRUGS (1)
  1. AXITINIB [Suspect]
     Active Substance: AXITINIB
     Indication: RENAL CANCER METASTATIC
     Dosage: 3 MG, 2X/DAY

REACTIONS (4)
  - Acute kidney injury [Unknown]
  - Psychomotor skills impaired [Unknown]
  - Confusional state [Unknown]
  - Asthenia [Unknown]
